FAERS Safety Report 21890390 (Version 1)
Quarter: 2023Q1

REPORT INFORMATION
  Report Type: Spontaneous
  Country: BE (occurrence: BE)
  Receive Date: 20230120
  Receipt Date: 20230120
  Transmission Date: 20230417
  Serious: Yes (Life-Threatening, Other)
  Sender: FDA-Public Use
  Company Number: None

PATIENT
  Age: 35 Year
  Sex: Male
  Weight: 72.1 kg

DRUGS (3)
  1. METHOTREXATE SODIUM [Suspect]
     Active Substance: METHOTREXATE SODIUM
     Indication: T-cell type acute leukaemia
     Dosage: BLOCK S2 (D15-D28) METHOTREXATE: 5000MG/M2 IV OVER 24H - INCLUDING 500MG/M2 IV OVER 30 MIN IN 100ML
     Dates: start: 20220301
  2. VINDESINE [Suspect]
     Active Substance: VINDESINE
     Indication: T-cell type acute leukaemia
     Dosage: BLOCK S2 (D15-D28): 4MG DT IV SLOW IN 50ML NACL 0.9% IN 5 MIN
     Dates: start: 20220301
  3. MERCAPTOPURINE [Suspect]
     Active Substance: MERCAPTOPURINE
     Indication: T-cell type acute leukaemia
     Dosage: BLOCK S2 (D15-D28): 60MG/M? PO (D15-D21)
     Dates: start: 20220301

REACTIONS (3)
  - Toxic skin eruption [Unknown]
  - Skin toxicity [Unknown]
  - Stevens-Johnson syndrome [Unknown]

NARRATIVE: CASE EVENT DATE: 20220301
